FAERS Safety Report 9231215 (Version 1)
Quarter: 2013Q1

REPORT INFORMATION
  Report Type: Spontaneous
  Country: US (occurrence: None)
  Receive Date: 20121031
  Receipt Date: 20121031
  Transmission Date: 20140127
  Serious: No
  Sender: FDA-Public Use
  Company Number: PHEH2012US015873

PATIENT
  Age: 34 Year
  Sex: Female
  Weight: 69.4 kg

DRUGS (6)
  1. GILENYA [Suspect]
     Route: 048
  2. BACLOFEN (BACLOFEN) [Concomitant]
  3. AMANTADINE (AMANTADINE) [Concomitant]
  4. ALLEGRA [Concomitant]
  5. MULTIVITAMINS [Concomitant]
  6. VITAMIN C [Concomitant]

REACTIONS (2)
  - Photophobia [None]
  - Vision blurred [None]
